FAERS Safety Report 10198749 (Version 1)
Quarter: 2014Q2

REPORT INFORMATION
  Report Type: Spontaneous
  Country: US (occurrence: US)
  Receive Date: 20140527
  Receipt Date: 20140527
  Transmission Date: 20141212
  Serious: No
  Sender: FDA-Public Use
  Company Number: US-NOVEN-13US008274

PATIENT
  Age: 11 Year
  Sex: Male
  Weight: 44.44 kg

DRUGS (1)
  1. DAYTRANA [Suspect]
     Indication: ATTENTION DEFICIT/HYPERACTIVITY DISORDER
     Dosage: 10 MG, QD
     Route: 062
     Dates: start: 201311, end: 20131114

REACTIONS (6)
  - Flushing [Recovered/Resolved]
  - Dermatitis contact [Recovered/Resolved]
  - Application site urticaria [Recovered/Resolved]
  - Application site swelling [Recovered/Resolved]
  - Application site pruritus [Recovered/Resolved]
  - Product quality issue [Recovered/Resolved]
